FAERS Safety Report 8203733-4 (Version None)
Quarter: 2012Q1

REPORT INFORMATION
  Report Type: 
  Country: None (occurrence: None)
  Receive Date: 20120308
  Receipt Date: 20120301
  Transmission Date: 20120608
  Serious: Yes (Death)
  Sender: FDA-Public Use
  Company Number: ACO_29594_2012

PATIENT
  Age: 44 Year
  Sex: Male

DRUGS (1)
  1. AMPYRA [Suspect]
     Dosage: 10 MG, Q 12 HRS,
     Dates: start: 20111101, end: 20120201

REACTIONS (1)
  - DEATH [None]
